FAERS Safety Report 9460109 (Version 2)
Quarter: 2015Q2

REPORT INFORMATION
  Report Type: Spontaneous
  Country: US (occurrence: US)
  Receive Date: 20130815
  Receipt Date: 20150501
  Transmission Date: 20150821
  Serious: Yes (Other)
  Sender: FDA-Public Use
  Company Number: PHHY2013US085383

PATIENT
  Age: 36 Year
  Sex: Female

DRUGS (1)
  1. PHENTERMINE [Suspect]
     Active Substance: PHENTERMINE
     Indication: WEIGHT DECREASED
     Route: 065

REACTIONS (7)
  - Nausea [Recovering/Resolving]
  - Colitis ischaemic [Recovering/Resolving]
  - Vomiting [Recovering/Resolving]
  - Bowel movement irregularity [Recovering/Resolving]
  - Abdominal pain [Recovering/Resolving]
  - Constipation [Recovering/Resolving]
  - Rectal haemorrhage [Recovering/Resolving]
